FAERS Safety Report 7256218-6 (Version None)
Quarter: 2011Q1

REPORT INFORMATION
  Report Type: 
  Country: None (occurrence: None)
  Receive Date: 20110129
  Receipt Date: 20100712
  Transmission Date: 20110831
  Serious: No
  Sender: FDA-Public Use
  Company Number: US-ABBOTT-10P-163-0645861-00

PATIENT
  Sex: Male
  Weight: 95.34 kg

DRUGS (8)
  1. PREDNISONE [Concomitant]
     Indication: PRODUCT USED FOR UNKNOWN INDICATION
  2. HUMIRA [Suspect]
     Indication: RHEUMATOID ARTHRITIS
     Route: 058
     Dates: end: 20100101
  3. TRAMADOL HCL [Concomitant]
     Indication: PRODUCT USED FOR UNKNOWN INDICATION
  4. HUMIRA [Suspect]
     Dosage: PEN
     Route: 058
     Dates: start: 20100101
  5. ARAVA [Concomitant]
     Indication: RHEUMATOID ARTHRITIS
  6. METAXALONE [Concomitant]
     Indication: PRODUCT USED FOR UNKNOWN INDICATION
  7. ADALIMUMAB (HUMIRA PRE-FILLED SYRINGE) [Concomitant]
     Indication: RHEUMATOID ARTHRITIS
     Route: 058
     Dates: start: 20100101, end: 20100201
  8. HUMIRA [Suspect]
     Indication: PRODUCT USED FOR UNKNOWN INDICATION
     Dates: start: 20100101

REACTIONS (6)
  - INJECTION SITE PAIN [None]
  - DEVICE MALFUNCTION [None]
  - INJECTION SITE HAEMORRHAGE [None]
  - DRUG INEFFECTIVE [None]
  - INCORRECT DOSE ADMINISTERED [None]
  - LACERATION [None]
